FAERS Safety Report 23260207 (Version 2)
Quarter: 2024Q1

REPORT INFORMATION
  Report Type: Report from Study
  Country: BR (occurrence: BR)
  Receive Date: 20231204
  Receipt Date: 20240109
  Transmission Date: 20240410
  Serious: Yes (Hospitalization)
  Sender: FDA-Public Use
  Company Number: BR-JNJFOC-20231173498

PATIENT
  Age: 50 Year
  Sex: Female

DRUGS (4)
  1. SPRAVATO [Suspect]
     Active Substance: ESKETAMINE
     Indication: Major depression
     Dates: start: 20221107
  2. SPRAVATO [Suspect]
     Active Substance: ESKETAMINE
  3. SPRAVATO [Suspect]
     Active Substance: ESKETAMINE
     Dosage: 1 DEVICE
     Dates: start: 202311
  4. SPRAVATO [Suspect]
     Active Substance: ESKETAMINE
     Dates: start: 20231120, end: 20231219

REACTIONS (5)
  - Pain in extremity [Unknown]
  - Rash pruritic [Unknown]
  - Dysarthria [Unknown]
  - Influenza [Unknown]
  - Off label use [Unknown]

NARRATIVE: CASE EVENT DATE: 20230101
